FAERS Safety Report 6745742-8 (Version None)
Quarter: 2010Q2

REPORT INFORMATION
  Report Type: 
  Country: None (occurrence: None)
  Receive Date: 20100528
  Receipt Date: 20100517
  Transmission Date: 20101027
  Serious: Yes (Other)
  Sender: FDA-Public Use
  Company Number: PHFR2010GB00662

PATIENT
  Sex: Female
  Weight: 59.1 kg

DRUGS (6)
  1. ACLASTA [Suspect]
     Indication: OSTEOPOROSIS
     Dosage: 5MG
     Dates: start: 20100523
  2. ESOMEPRAZOLE MAGNESIUM [Concomitant]
     Indication: PEPTIC ULCER
     Dosage: 40 MG, QD
     Route: 048
  3. FENTANYL [Concomitant]
     Indication: PAIN
     Dosage: 50 UG, QH
     Route: 061
  4. HYOSCINE [Concomitant]
     Indication: NAUSEA
     Route: 048
  5. IMURAN [Concomitant]
     Indication: LIVER TRANSPLANT
     Dosage: 25 MG, QD
     Route: 048
  6. PREDNISOLONE [Concomitant]
     Indication: LIVER TRANSPLANT
     Dosage: 2.5 MG, QD
     Route: 048

REACTIONS (5)
  - BONE PAIN [None]
  - CONFUSIONAL STATE [None]
  - DISORIENTATION [None]
  - FATIGUE [None]
  - MYALGIA [None]
